FAERS Safety Report 5461073-0 (Version None)
Quarter: 2007Q3

REPORT INFORMATION
  Report Type: 
  Country: None (occurrence: None)
  Receive Date: 20070820
  Receipt Date: 20070612
  Transmission Date: 20080115
  Serious: No
  Sender: FDA-Public Use
  Company Number: TPA2007A00510

PATIENT
  Sex: Male
  Weight: 131.5431 kg

DRUGS (5)
  1. ROZEREM [Suspect]
     Indication: INSOMNIA
     Dosage: 8 MG, QHS, PER ORAL
     Route: 048
     Dates: start: 20070129, end: 20070226
  2. NORVASC [Concomitant]
  3. ALTACE [Concomitant]
  4. VIAGRA [Concomitant]
  5. LIPITOR [Concomitant]

REACTIONS (1)
  - NIGHTMARE [None]
